FAERS Safety Report 22949386 (Version 2)
Quarter: 2024Q4

REPORT INFORMATION
  Report Type: Spontaneous
  Country: IT (occurrence: IT)
  Receive Date: 20230915
  Receipt Date: 20241016
  Transmission Date: 20250114
  Serious: Yes (Hospitalization, Other)
  Sender: RANBAXY
  Company Number: IT-SUN PHARMACEUTICAL INDUSTRIES LTD-2023R1-408388

PATIENT
  Age: 32 Year
  Sex: Male

DRUGS (1)
  1. CLINDAMYCIN [Suspect]
     Active Substance: CLINDAMYCIN
     Indication: Product used for unknown indication
     Dosage: 600 MILLIGRAM
     Route: 065

REACTIONS (8)
  - Dyskinesia [Unknown]
  - Confusional state [Unknown]
  - Amnesia [Unknown]
  - Drug level increased [Unknown]
  - Incorrect route of product administration [Unknown]
  - Wrong product administered [Unknown]
  - Headache [Unknown]
  - Motor dysfunction [Unknown]
